FAERS Safety Report 19222414 (Version 1)
Quarter: 2021Q2

REPORT INFORMATION
  Report Type: Spontaneous
  Country: US (occurrence: US)
  Receive Date: 20210506
  Receipt Date: 20210506
  Transmission Date: 20210717
  Serious: Yes (Other)
  Sender: FDA-Public Use
  Company Number: US-AMNEAL PHARMACEUTICALS-2021-AMRX-01441

PATIENT
  Sex: Female

DRUGS (2)
  1. PYRIDOSTIGMINE BROMIDE. [Suspect]
     Active Substance: PYRIDOSTIGMINE BROMIDE
     Indication: AUTOIMMUNE DISORDER
     Dosage: 3 TABLETS; UNK
     Route: 048
     Dates: start: 2021, end: 2021
  2. PYRIDOSTIGMINE BROMIDE. [Suspect]
     Active Substance: PYRIDOSTIGMINE BROMIDE
     Dosage: 1 TABLETS; UNK
     Route: 048
     Dates: start: 2021, end: 2021

REACTIONS (3)
  - Throat tightness [Not Recovered/Not Resolved]
  - Product substitution issue [Unknown]
  - Blood pressure increased [Not Recovered/Not Resolved]

NARRATIVE: CASE EVENT DATE: 2021
